FAERS Safety Report 8807967 (Version 1)
Quarter: 2012Q4

REPORT INFORMATION
  Report Type: 
  Country: US (occurrence: US)
  Receive Date: 20120925
  Receipt Date: 20120925
  Transmission Date: 20130627
  Serious: Yes (Other)
  Sender: FDA-Public Use
  Company Number: US-JNJFOC-20120908442

PATIENT
  Age: 88 Year
  Sex: Male
  Weight: 38.56 kg

DRUGS (2)
  1. EXTRA STRENGTH TYLENOL [Suspect]
     Indication: RELAXATION THERAPY
     Dosage: half pill
     Route: 048
  2. BIAXIN [Concomitant]
     Indication: LUNG DISORDER
     Dosage: since 3 years
     Route: 065
     Dates: start: 2009

REACTIONS (2)
  - Haematemesis [Recovered/Resolved]
  - Intentional drug misuse [Unknown]
